FAERS Safety Report 21414353 (Version 1)
Quarter: 2022Q4

REPORT INFORMATION
  Report Type: Spontaneous
  Country: US (occurrence: US)
  Receive Date: 20221006
  Receipt Date: 20221006
  Transmission Date: 20230112
  Serious: No
  Sender: FDA-Public Use
  Company Number: US-ALLERGAN-2227176US

PATIENT
  Sex: Male

DRUGS (2)
  1. QULIPTA [Suspect]
     Active Substance: ATOGEPANT
     Indication: Product used for unknown indication
     Dosage: 60 MG
  2. QULIPTA [Suspect]
     Active Substance: ATOGEPANT
     Dosage: 30 MG

REACTIONS (2)
  - Wrong technique in product usage process [Unknown]
  - Therapeutic product effect incomplete [Unknown]
